FAERS Safety Report 11223035 (Version 1)
Quarter: 2015Q2

REPORT INFORMATION
  Report Type: Other
  Country: GB (occurrence: GB)
  Receive Date: 20150626
  Receipt Date: 20150626
  Transmission Date: 20150821
  Serious: Yes (Other)
  Sender: FDA-Public Use
  Company Number: GB-MYLANLABS-2015M1020240

PATIENT

DRUGS (3)
  1. FERROUS FUMARATE [Concomitant]
     Active Substance: FERROUS FUMARATE
     Indication: IRON DEFICIENCY
     Dosage: 1 DF, TID
     Dates: start: 20150227, end: 20150327
  2. CITALOPRAM [Concomitant]
     Active Substance: CITALOPRAM HYDROBROMIDE
     Dosage: USE AS DIRECTED.
     Dates: start: 20150511
  3. VENLAFAXINE [Suspect]
     Active Substance: VENLAFAXINE HYDROCHLORIDE
     Dosage: UNK
     Dates: start: 20150324

REACTIONS (2)
  - Trichorrhexis [Unknown]
  - Alopecia [Unknown]

NARRATIVE: CASE EVENT DATE: 20150519
